FAERS Safety Report 6957825-8 (Version None)
Quarter: 2010Q3

REPORT INFORMATION
  Report Type: 
  Country: None (occurrence: None)
  Receive Date: 20100831
  Receipt Date: 20100819
  Transmission Date: 20110219
  Serious: Yes (Hospitalization, Other)
  Sender: FDA-Public Use
  Company Number: US-ELI_LILLY_AND_COMPANY-US201004001973

PATIENT
  Sex: Female

DRUGS (7)
  1. ZYPREXA [Suspect]
     Indication: MAJOR DEPRESSION
     Dosage: 5 MG, DAILY (1/D)
     Dates: start: 20040101, end: 20040101
  2. ZYPREXA [Suspect]
     Dosage: 10 MG, DAILY (1/D)
     Dates: start: 20040101, end: 20040101
  3. XANAX [Concomitant]
  4. TRAZODONE HCL [Concomitant]
  5. LITHIUM [Concomitant]
  6. LYRICA [Concomitant]
  7. VICODIN [Concomitant]
     Dosage: 7.5 MG, UNK

REACTIONS (27)
  - ABNORMAL BEHAVIOUR [None]
  - ABNORMAL DREAMS [None]
  - ANXIETY [None]
  - BONE PAIN [None]
  - CARDIAC DISORDER [None]
  - CHONDROPATHY [None]
  - COGNITIVE DISORDER [None]
  - CONFUSIONAL STATE [None]
  - CRYING [None]
  - DISSOCIATIVE DISORDER [None]
  - DYSLEXIA [None]
  - EMOTIONAL DISORDER [None]
  - FALL [None]
  - FURUNCLE [None]
  - GASTROINTESTINAL DISORDER [None]
  - HEADACHE [None]
  - HYPOTHYROIDISM [None]
  - INJURY [None]
  - LOSS OF CONSCIOUSNESS [None]
  - NASAL CONGESTION [None]
  - NERVOUS SYSTEM DISORDER [None]
  - OFF LABEL USE [None]
  - PANIC ATTACK [None]
  - PELVIC FRACTURE [None]
  - RHINORRHOEA [None]
  - TIC [None]
  - WHIPLASH INJURY [None]
